FAERS Safety Report 7093954-9 (Version None)
Quarter: 2010Q4

REPORT INFORMATION
  Report Type: 
  Country: None (occurrence: None)
  Receive Date: 20101110
  Receipt Date: 20091102
  Transmission Date: 20110411
  Serious: No
  Sender: FDA-Public Use
  Company Number: US-PFIZER INC-2009294276

PATIENT
  Sex: Male

DRUGS (7)
  1. NITROGLYCERIN [Suspect]
     Dosage: UNK
  2. METOPROLOL TARTRATE [Suspect]
     Dosage: UNK
  3. LISINOPRIL [Suspect]
     Dosage: UNK
  4. CARVEDILOL [Concomitant]
  5. PRAVASTATIN [Concomitant]
  6. WARFARIN [Concomitant]
  7. COZAAR [Concomitant]

REACTIONS (3)
  - ARRHYTHMIA [None]
  - EXPIRED DRUG ADMINISTERED [None]
  - HEART RATE DECREASED [None]
